FAERS Safety Report 9682797 (Version 4)
Quarter: 2014Q2

REPORT INFORMATION
  Report Type: Report from Study
  Country: JP (occurrence: JP)
  Receive Date: 20131112
  Receipt Date: 20140624
  Transmission Date: 20141212
  Serious: Yes (Hospitalization, Other)
  Sender: FDA-Public Use
  Company Number: PHHY2013JP127360

PATIENT
  Age: 15 Year
  Sex: Male
  Weight: 43 kg

DRUGS (3)
  1. AMN107 [Suspect]
     Indication: CHRONIC MYELOID LEUKAEMIA
     Dosage: 600 MG, DAILY
     Route: 048
     Dates: start: 20111005, end: 20121005
  2. KYTRIL [Concomitant]
     Indication: PROPHYLAXIS
     Dosage: 4 DF, UNK
     Route: 048
     Dates: start: 20100830, end: 20121005
  3. URSO [Concomitant]
     Indication: PROPHYLAXIS
     Dosage: 6 DF
     Route: 048
     Dates: start: 20111019, end: 20130116

REACTIONS (2)
  - Acne pustular [Recovering/Resolving]
  - Blood alkaline phosphatase increased [Recovering/Resolving]
